FAERS Safety Report 8379107-2 (Version None)
Quarter: 2012Q2

REPORT INFORMATION
  Report Type: 
  Country: None (occurrence: None)
  Receive Date: 20120523
  Receipt Date: 20120511
  Transmission Date: 20120825
  Serious: Yes (Other)
  Sender: FDA-Public Use
  Company Number: US-SANOFI-AVENTIS-2012SA029835

PATIENT
  Age: 64 Year
  Sex: Male
  Weight: 113.63 kg

DRUGS (6)
  1. FERROUS SULFATE TAB [Concomitant]
  2. SIMVASTATIN [Concomitant]
     Indication: BLOOD CHOLESTEROL ABNORMAL
  3. VITAMIN D [Concomitant]
  4. TERAZOSIN HCL [Concomitant]
     Indication: PROSTATIC DISORDER
  5. LANTUS [Suspect]
     Indication: DIABETES MELLITUS
     Dosage: DOSE:40 UNIT(S)
     Route: 058
     Dates: start: 20090101
  6. ATENOLOL [Concomitant]

REACTIONS (6)
  - BLINDNESS UNILATERAL [None]
  - CATARACT [None]
  - VISUAL IMPAIRMENT [None]
  - MEMORY IMPAIRMENT [None]
  - ANXIETY [None]
  - BLOOD GLUCOSE INCREASED [None]
